FAERS Safety Report 9375895 (Version 2)
Quarter: 2013Q4

REPORT INFORMATION
  Report Type: Spontaneous
  Country: US (occurrence: US)
  Receive Date: 20130628
  Receipt Date: 20131213
  Transmission Date: 20140711
  Serious: Yes (Death, Hospitalization, Other)
  Sender: FDA-Public Use
  Company Number: US-B.I. PHARMACEUTICALS,INC./RIDGEFIELD-2013-BI-18569BP

PATIENT
  Age: 84 Year
  Sex: Female
  Weight: 58.97 kg

DRUGS (8)
  1. PRADAXA [Suspect]
     Indication: ANTICOAGULANT THERAPY
     Dosage: 300 MG
     Dates: start: 20110406, end: 20110627
  2. PRADAXA [Suspect]
     Indication: ATRIAL FIBRILLATION
  3. BENICAR [Concomitant]
     Dosage: 20 MG
     Route: 048
     Dates: start: 2009, end: 2011
  4. COREG [Concomitant]
     Dosage: 6.25 MG
     Route: 048
     Dates: start: 2008, end: 2011
  5. SPIRONOLACTONE [Concomitant]
     Dosage: 25 MG
     Route: 048
     Dates: start: 2008, end: 2011
  6. ASPIRIN [Concomitant]
     Dosage: 81 MG
  7. AMIODARONE [Concomitant]
  8. OMEGA 3 FATTY ACIDS [Concomitant]

REACTIONS (7)
  - Gastrointestinal haemorrhage [Fatal]
  - Coagulopathy [Fatal]
  - Myocardial infarction [Fatal]
  - Mass [Unknown]
  - Anaemia [Unknown]
  - Shock [Unknown]
  - Respiratory failure [Unknown]
